FAERS Safety Report 8065757-X (Version None)
Quarter: 2012Q1

REPORT INFORMATION
  Report Type: 
  Country: None (occurrence: None)
  Receive Date: 20120124
  Receipt Date: 20120117
  Transmission Date: 20120608
  Serious: Yes (Other)
  Sender: FDA-Public Use
  Company Number: BR-PFIZER INC-2012013841

PATIENT
  Age: 50 Year
  Sex: Female

DRUGS (9)
  1. AMIODARONE HYDROCHLORIDE [Concomitant]
     Indication: ARRHYTHMIA
     Dosage: UNK
     Dates: start: 20110101, end: 20120101
  2. SIMVASTATIN [Concomitant]
     Indication: BLOOD CHOLESTEROL ABNORMAL
     Dosage: UNK
     Dates: start: 20110101, end: 20120101
  3. LYRICA [Suspect]
     Dosage: 75 MG, 2X/DAY
     Route: 048
     Dates: start: 20110717
  4. FLANCOX [Concomitant]
     Indication: PAIN
     Dosage: UNK
     Dates: start: 20090101, end: 20120101
  5. SUSTRATE [Concomitant]
     Indication: CARDIAC DISORDER
     Dosage: UNK
     Dates: start: 20110501, end: 20120101
  6. HIDRION [Concomitant]
     Indication: DIURETIC THERAPY
     Dosage: UNK
     Dates: start: 20110101, end: 20120101
  7. CARVEDILOL [Concomitant]
     Indication: CARDIAC DISORDER
     Dosage: UNK
     Dates: start: 20110101, end: 20120101
  8. ALDACTONE [Concomitant]
     Indication: BLOOD PRESSURE INCREASED
     Dosage: UNK
     Dates: start: 20110101, end: 20120101
  9. APRAZ [Concomitant]
     Indication: SLEEP DISORDER
     Dosage: UNK
     Dates: start: 20110701, end: 20120101

REACTIONS (2)
  - ARTHRITIS [None]
  - OSTEOARTHRITIS [None]
